FAERS Safety Report 17709149 (Version 1)
Quarter: 2020Q2

REPORT INFORMATION
  Report Type: Spontaneous
  Country: US (occurrence: US)
  Receive Date: 20200426
  Receipt Date: 20200426
  Transmission Date: 20200714
  Serious: No
  Sender: FDA-Public Use
  Company Number: US-AMGEN-USASP2020064907

PATIENT
  Age: 64 Year
  Sex: Female

DRUGS (2)
  1. PROLIA [Suspect]
     Active Substance: DENOSUMAB
     Indication: OSTEOPENIA
  2. PROLIA [Suspect]
     Active Substance: DENOSUMAB
     Indication: OSTEOPOROSIS POSTMENOPAUSAL
     Dosage: UNK
     Route: 065
     Dates: start: 201909

REACTIONS (13)
  - Pain in extremity [Recovering/Resolving]
  - Bladder pain [Unknown]
  - Dizziness [Unknown]
  - Urticaria [Unknown]
  - Nasal congestion [Not Recovered/Not Resolved]
  - Alopecia [Recovering/Resolving]
  - Headache [Unknown]
  - Influenza like illness [Recovering/Resolving]
  - Confusional state [Unknown]
  - Asthenia [Recovering/Resolving]
  - Gingival disorder [Recovering/Resolving]
  - Cystitis [Recovering/Resolving]
  - Eczema [Unknown]

NARRATIVE: CASE EVENT DATE: 2019
